FAERS Safety Report 5270949-9 (Version None)
Quarter: 2007Q1

REPORT INFORMATION
  Report Type: 
  Country: None (occurrence: None)
  Receive Date: 20070321
  Receipt Date: 20070313
  Transmission Date: 20070707
  Serious: Yes (Other)
  Sender: FDA-Public Use
  Company Number: US-AVENTIS-200711746US

PATIENT
  Age: 38 Year
  Sex: Female

DRUGS (1)
  1. LOVENOX [Suspect]
     Dates: start: 20070208, end: 20070222

REACTIONS (3)
  - ABORTION SPONTANEOUS [None]
  - DRUG EXPOSURE DURING PREGNANCY [None]
  - MEDICATION ERROR [None]
